FAERS Safety Report 7468699-3 (Version None)
Quarter: 2011Q2

REPORT INFORMATION
  Report Type: 
  Country: None (occurrence: None)
  Receive Date: 20110510
  Receipt Date: 20110429
  Transmission Date: 20111010
  Serious: No
  Sender: FDA-Public Use
  Company Number: US-BIOGENIDEC-2011BI000122

PATIENT
  Age: 42 Year
  Sex: Female

DRUGS (4)
  1. TYSABRI [Suspect]
     Route: 042
     Dates: start: 20081223, end: 20100322
  2. UNKNOWN MEDICATION (NOS) [Concomitant]
     Indication: PREMEDICATION
  3. ACETAMINOPHEN [Concomitant]
     Indication: PREMEDICATION
  4. TYSABRI [Suspect]
     Indication: MULTIPLE SCLEROSIS
     Route: 042
     Dates: start: 20101018

REACTIONS (7)
  - CONJUNCTIVITIS INFECTIVE [None]
  - AMENORRHOEA [None]
  - MENSTRUATION IRREGULAR [None]
  - POLYMENORRHOEA [None]
  - FATIGUE [None]
  - ABDOMINAL DISCOMFORT [None]
  - AGEUSIA [None]
